FAERS Safety Report 21759610 (Version 1)
Quarter: 2022Q4

REPORT INFORMATION
  Report Type: Spontaneous
  Country: NL (occurrence: NL)
  Receive Date: 20221221
  Receipt Date: 20221221
  Transmission Date: 20230113
  Serious: Yes (Hospitalization)
  Sender: FDA-Public Use
  Company Number: NL-ALKEM LABORATORIES LIMITED-NL-ALKEM-2022-13665

PATIENT
  Age: 2 Year
  Sex: Female
  Weight: 13 kg

DRUGS (1)
  1. OLANZAPINE [Suspect]
     Active Substance: OLANZAPINE
     Indication: Product used for unknown indication
     Dosage: 30 MILLIGRAM (ESTIMATED BASED ON LEVELS 115-230 MG)
     Route: 065

REACTIONS (9)
  - Miosis [Recovered/Resolved]
  - Agitation [Recovered/Resolved]
  - Hypertension [Recovered/Resolved]
  - Hypotension [Recovered/Resolved]
  - Dysarthria [Recovered/Resolved]
  - Tachycardia [Recovered/Resolved]
  - Accidental overdose [Unknown]
  - Loss of consciousness [Recovered/Resolved]
  - Toxicity to various agents [Unknown]
